FAERS Safety Report 24149140 (Version 2)
Quarter: 2024Q3

REPORT INFORMATION
  Report Type: Spontaneous
  Country: JP (occurrence: JP)
  Receive Date: 20240729
  Receipt Date: 20240918
  Transmission Date: 20241016
  Serious: Yes (Other)
  Sender: SANOFI AVENTIS
  Company Number: JP-SA-2024SA154044

PATIENT
  Age: 77 Year
  Sex: Male
  Weight: 64 kg

DRUGS (11)
  1. DUPIXENT [Suspect]
     Active Substance: DUPILUMAB
     Indication: Neurodermatitis
     Dosage: 300 MG, 1X
     Route: 058
     Dates: start: 20240517, end: 20240517
  2. DUPIXENT [Suspect]
     Active Substance: DUPILUMAB
     Dosage: 300 MG, 1X
     Route: 058
     Dates: start: 20240405, end: 20240405
  3. DUPIXENT [Suspect]
     Active Substance: DUPILUMAB
     Dosage: 300 MG, QOW
     Route: 058
     Dates: start: 20231213, end: 20240110
  4. DUPIXENT [Suspect]
     Active Substance: DUPILUMAB
     Dosage: 300 MG, 1X
     Route: 058
     Dates: start: 20240202, end: 20240202
  5. DUPIXENT [Suspect]
     Active Substance: DUPILUMAB
     Dosage: 300 MG, 1X
     Route: 058
     Dates: start: 20240301, end: 20240301
  6. HEPARINOID [Concomitant]
     Indication: Product used for unknown indication
     Route: 065
  7. FEXOFENADINE HYDROCHLORIDE [Concomitant]
     Active Substance: FEXOFENADINE HYDROCHLORIDE
     Indication: Toxic skin eruption
     Dosage: 2 DF, BID (DOSE: 60 MG)
     Route: 048
     Dates: start: 20220712
  8. FEXOFENADINE HYDROCHLORIDE [Concomitant]
     Active Substance: FEXOFENADINE HYDROCHLORIDE
     Indication: Pruritus
  9. HUSCODE [Concomitant]
     Active Substance: CHLORPHENIRAMINE MALEATE\DIHYDROCODEINE PHOSPHATE\METHYLEPHEDRINE HYDROCHLORIDE, DL-
     Indication: Nasopharyngitis
     Dosage: UNK
     Route: 048
     Dates: start: 20240509, end: 20240513
  10. TRANEXAMIC ACID [Concomitant]
     Active Substance: TRANEXAMIC ACID
     Indication: Nasopharyngitis
     Dosage: UNK
     Route: 048
     Dates: start: 20240509, end: 20240513
  11. CARBOCYSTEINE [Concomitant]
     Active Substance: CARBOCYSTEINE
     Indication: Nasopharyngitis
     Dosage: UNK
     Route: 048
     Dates: start: 20240509, end: 20240513

REACTIONS (4)
  - Toxic skin eruption [Unknown]
  - Erythema [Recovered/Resolved]
  - Pruritus [Recovering/Resolving]
  - Skin tightness [Unknown]

NARRATIVE: CASE EVENT DATE: 20240510
